FAERS Safety Report 6637918-5 (Version None)
Quarter: 2010Q1

REPORT INFORMATION
  Report Type: 
  Country: None (occurrence: None)
  Receive Date: 20100317
  Receipt Date: 20100305
  Transmission Date: 20100710
  Serious: Yes (Other)
  Sender: FDA-Public Use
  Company Number: PHHY2010FR09131

PATIENT
  Sex: Male
  Weight: 56 kg

DRUGS (7)
  1. RITALIN [Suspect]
     Indication: PSYCHOMOTOR HYPERACTIVITY
     Dosage: 30 MG DAILY
     Dates: start: 20080101, end: 20090901
  2. RITALIN [Suspect]
     Dosage: 30 MG DAILY
     Dates: start: 20091201
  3. RITALIN [Suspect]
     Dosage: 20 MG DAILY
     Dates: start: 20100126
  4. RITALIN [Suspect]
     Dosage: 30 MG DAILY
     Route: 065
     Dates: start: 20100202
  5. RISPERDAL [Concomitant]
     Dosage: 2 MG DAILY
     Route: 065
     Dates: start: 20080904
  6. DEPAMIDE [Concomitant]
     Dosage: 600 MG DAILY
     Route: 065
     Dates: start: 20090724, end: 20100202
  7. LEPTICUR [Concomitant]
     Dosage: 10 MG, PRN
     Route: 065
     Dates: start: 20080904

REACTIONS (4)
  - HYPERKALAEMIA [None]
  - PLATELET COUNT DECREASED [None]
  - PROTHROMBIN TIME SHORTENED [None]
  - THROMBOCYTOPENIA [None]
